FAERS Safety Report 16454040 (Version 1)
Quarter: 2019Q2

REPORT INFORMATION
  Report Type: Spontaneous
  Country: DE (occurrence: DE)
  Receive Date: 20190620
  Receipt Date: 20190620
  Transmission Date: 20190711
  Serious: Yes (Other)
  Sender: FDA-Public Use
  Company Number: DE-AUROBINDO-AUR-APL-2019-034221

PATIENT

DRUGS (3)
  1. IMPLANON [Concomitant]
     Active Substance: ETONOGESTREL
     Indication: HORMONAL CONTRACEPTION
     Dosage: IMPLANT
     Route: 058
     Dates: start: 20180927
  2. AURODES-EE 150/20MCG FILM COATED TABLET [Suspect]
     Active Substance: DESOGESTREL\ETHINYL ESTRADIOL
     Indication: VAGINAL HAEMORRHAGE
     Dosage: 1 DOSAGE FORM, ONCE A DAY
     Route: 048
     Dates: start: 20190315, end: 20190405
  3. AURODES-EE 150/30MCG FILM COATED TABLET [Suspect]
     Active Substance: DESOGESTREL\ETHINYL ESTRADIOL
     Indication: VAGINAL HAEMORRHAGE
     Dosage: 1 DOSAGE FORM, ONCE A DAY
     Route: 048
     Dates: start: 20190215, end: 20190307

REACTIONS (3)
  - Gamma-glutamyltransferase increased [Not Recovered/Not Resolved]
  - Hepatic enzyme increased [Not Recovered/Not Resolved]
  - Off label use [Unknown]

NARRATIVE: CASE EVENT DATE: 20190215
